FAERS Safety Report 18024925 (Version 2)
Quarter: 2020Q3

REPORT INFORMATION
  Report Type: Report from Study
  Country: FR (occurrence: FR)
  Receive Date: 20200715
  Receipt Date: 20200728
  Transmission Date: 20201103
  Serious: Yes (Hospitalization, Other)
  Sender: FDA-Public Use
  Company Number: FR-JNJFOC-20200705605

PATIENT
  Age: 74 Year
  Sex: Male

DRUGS (26)
  1. HUMIRA [Concomitant]
     Active Substance: ADALIMUMAB
     Route: 058
     Dates: start: 201504
  2. DILTIAZEM HYDROCHLORIDE. [Concomitant]
     Active Substance: DILTIAZEM HYDROCHLORIDE
     Route: 065
     Dates: start: 20160521
  3. TAMSULOSIN HYDROCHLORIDE. [Concomitant]
     Active Substance: TAMSULOSIN HYDROCHLORIDE
     Route: 065
  4. HUMIRA [Concomitant]
     Active Substance: ADALIMUMAB
     Route: 058
     Dates: start: 20200609
  5. HYDROCORTISONE                     /00028605/ [Concomitant]
     Active Substance: HYDROCORTISONE BUTYRATE
     Route: 065
  6. GLYCERYL TRINITRATE [Concomitant]
     Active Substance: NITROGLYCERIN
     Route: 065
     Dates: start: 20160521
  7. BETAMETHASONE. [Concomitant]
     Active Substance: BETAMETHASONE
     Route: 065
  8. SOLUPRED                           /00016201/ [Concomitant]
     Active Substance: PREDNISOLONE
     Route: 065
  9. STELARA [Suspect]
     Active Substance: USTEKINUMAB
     Route: 058
     Dates: start: 20160901, end: 20190723
  10. AMOXICILLIN. [Concomitant]
     Active Substance: AMOXICILLIN
     Route: 065
  11. HUMIRA [Concomitant]
     Active Substance: ADALIMUMAB
     Route: 058
     Dates: start: 20140608
  12. CEFUROXIME. [Concomitant]
     Active Substance: CEFUROXIME
     Route: 065
  13. PRISTINAMYCINE [Concomitant]
     Active Substance: PRISTINAMYCIN
     Route: 065
     Dates: start: 20160201
  14. SIMVASTATINE [Concomitant]
     Active Substance: SIMVASTATIN
     Route: 065
  15. ESOMEPRAZOLE. [Concomitant]
     Active Substance: ESOMEPRAZOLE MAGNESIUM
     Route: 065
     Dates: start: 20160521
  16. HUMIRA [Concomitant]
     Active Substance: ADALIMUMAB
     Route: 058
     Dates: start: 20191013
  17. CLOPIDOGREL [Concomitant]
     Active Substance: CLOPIDOGREL BISULFATE
     Route: 065
     Dates: start: 20160521
  18. HUMIRA [Concomitant]
     Active Substance: ADALIMUMAB
     Route: 058
  19. BENZYL ALCOHOL [Concomitant]
     Active Substance: BENZYL ALCOHOL
     Route: 065
  20. RAMIPRIL. [Concomitant]
     Active Substance: RAMIPRIL
     Route: 065
     Dates: start: 20160521
  21. STELARA [Suspect]
     Active Substance: USTEKINUMAB
     Indication: PSORIASIS
     Route: 058
     Dates: start: 20160801
  22. HUMIRA [Concomitant]
     Active Substance: ADALIMUMAB
     Route: 058
     Dates: start: 20140523
  23. HUMIRA [Concomitant]
     Active Substance: ADALIMUMAB
     Route: 058
     Dates: start: 20140601
  24. ACETYLSALICYLIC ACID [Concomitant]
     Active Substance: ASPIRIN
     Route: 065
  25. DILTIAZEM HYDROCHLORIDE. [Concomitant]
     Active Substance: DILTIAZEM HYDROCHLORIDE
     Route: 065
  26. ZINNAT                             /00454602/ [Concomitant]
     Active Substance: CEFUROXIME SODIUM
     Route: 065
     Dates: start: 201509

REACTIONS (8)
  - Pneumonia [Unknown]
  - Cerebrovascular accident [Recovered/Resolved]
  - Aortic valve replacement [Recovered/Resolved]
  - Staphylococcal bacteraemia [Recovered/Resolved]
  - Atrial fibrillation [Recovered/Resolved]
  - Inappropriate schedule of product administration [Unknown]
  - Escherichia sepsis [Unknown]
  - Off label use [Unknown]

NARRATIVE: CASE EVENT DATE: 20160801
